FAERS Safety Report 4711134-6 (Version None)
Quarter: 2005Q3

REPORT INFORMATION
  Report Type: 
  Country: None (occurrence: None)
  Receive Date: 20050708
  Receipt Date: 20050624
  Transmission Date: 20060218
  Serious: Yes (Hospitalization)
  Sender: FDA-Public Use
  Company Number: 106953ISR

PATIENT
  Age: 72 Year
  Sex: Female

DRUGS (13)
  1. DOXORUBICIN HCL [Suspect]
     Indication: LYMPHOMA
     Dosage: 15 MILLIGRAM; INTRAVENOUS (NOS)
     Route: 042
     Dates: start: 20050511, end: 20050514
  2. CYCLOPHOSPHAMIDE [Concomitant]
     Indication: LYMPHOMA
     Dosage: 1100 MILLIGRAM; INTRAVENOUS (NOS)
     Route: 042
     Dates: start: 20050515, end: 20050515
  3. VINCRISTINE SULFATE [Concomitant]
     Indication: LYMPHOMA
     Dosage: 0.6 MILLIGRAM; INTRAVENOUS (NOS)
     Route: 042
     Dates: start: 20050511, end: 20050514
  4. ETOPOSIDE [Concomitant]
     Indication: LYMPHOMA
     Dosage: 75 MILLIGRAM; INTRAVENOUS (NOS),
     Route: 042
     Dates: start: 20050511, end: 20050514
  5. AMOXICILLIN AND CLAVULANATE POTASSIUM [Concomitant]
     Dosage: 1 GRAM; ORAL
     Route: 048
     Dates: start: 20050517, end: 20050525
  6. FILGRASTIM [Concomitant]
  7. LEVOTHYROXINE SODIUM [Concomitant]
  8. GELOX [Concomitant]
  9. AMPHOTERICIN B [Concomitant]
  10. HEXETIDINE [Concomitant]
  11. LORMETAZEPAM [Concomitant]
  12. EPOETIN ALFA [Concomitant]
  13. METHYLPREDNISOLONE SODIUM SUCCINATE [Concomitant]

REACTIONS (9)
  - AGRANULOCYTOSIS [None]
  - ANAEMIA [None]
  - ANOREXIA [None]
  - ASTHENIA [None]
  - DEHYDRATION [None]
  - DIABETES MELLITUS INSULIN-DEPENDENT [None]
  - HYPONATRAEMIA [None]
  - THROMBOCYTOPENIA [None]
  - URINARY TRACT INFECTION [None]
